FAERS Safety Report 8087410-9 (Version None)
Quarter: 2012Q1

REPORT INFORMATION
  Report Type: 
  Country: None (occurrence: None)
  Receive Date: 20120128
  Receipt Date: 20110509
  Transmission Date: 20120608
  Serious: No
  Sender: FDA-Public Use
  Company Number: US-ABBOTT-11P-163-0724341-00

PATIENT
  Sex: Female
  Weight: 66.738 kg

DRUGS (9)
  1. HUMIRA [Suspect]
     Indication: COLITIS ULCERATIVE
     Route: 058
     Dates: start: 20100901
  2. LIPITOR [Concomitant]
     Indication: BLOOD CHOLESTEROL INCREASED
  3. INSULIN [Concomitant]
     Indication: DIABETES MELLITUS
  4. METFFORMIN HYDROCHLORIDE [Concomitant]
     Indication: DIABETES MELLITUS
  5. ACCUPRIL [Concomitant]
     Indication: HYPERTENSION
  6. ZIAC [Concomitant]
     Indication: HYPERTENSION
  7. PREDNISONE TAB [Concomitant]
     Indication: TEMPORAL ARTERITIS
  8. NEURONTIN [Concomitant]
     Indication: NEUROPATHY PERIPHERAL
  9. NORVASC [Concomitant]
     Indication: HYPERTENSION

REACTIONS (3)
  - INJECTION SITE PRURITUS [None]
  - INJECTION SITE RASH [None]
  - INJECTION SITE SWELLING [None]
